FAERS Safety Report 5275791-0 (Version None)
Quarter: 2007Q1

REPORT INFORMATION
  Report Type: 
  Country: None (occurrence: None)
  Receive Date: 20070326
  Receipt Date: 20070316
  Transmission Date: 20070707
  Serious: Yes (Hospitalization)
  Sender: FDA-Public Use
  Company Number: FR-GLAXOSMITHKLINE-B0462799A

PATIENT
  Age: 55 Year
  Sex: Male
  Weight: 70 kg

DRUGS (8)
  1. SERETIDE [Suspect]
     Dosage: 1PUFF TWICE PER DAY
     Route: 055
     Dates: start: 20070207, end: 20070213
  2. AUGMENTIN '125' [Suspect]
     Indication: ACUTE TONSILLITIS
     Dosage: 1G TWICE PER DAY
     Route: 048
     Dates: start: 20070210, end: 20070213
  3. PRIMPERAN INJ [Suspect]
     Dosage: 10MG THREE TIMES PER DAY
     Route: 048
     Dates: start: 20070207
  4. CARBOCISTEINE [Suspect]
     Dosage: 15ML THREE TIMES PER DAY
     Route: 048
     Dates: start: 20070210, end: 20070213
  5. OMEPRAZOLE [Suspect]
     Dosage: 20MG PER DAY
     Route: 048
     Dates: start: 20070207, end: 20070213
  6. RULID [Suspect]
     Dosage: 150MG TWICE PER DAY
     Route: 048
     Dates: start: 20070207, end: 20070210
  7. VENTODISK [Concomitant]
     Dosage: 1PUFF THREE TIMES PER DAY
     Route: 055
     Dates: start: 20070210
  8. FLUISEDAL SANS PROMETHAZINE [Concomitant]
     Dates: start: 20070207

REACTIONS (9)
  - ARTHRALGIA [None]
  - BACK PAIN [None]
  - FATIGUE [None]
  - PHARYNGOLARYNGEAL PAIN [None]
  - RASH MACULAR [None]
  - RASH PAPULAR [None]
  - RASH PUSTULAR [None]
  - RHINITIS [None]
  - SKIN EXFOLIATION [None]
